FAERS Safety Report 15490360 (Version 1)
Quarter: 2018Q4

REPORT INFORMATION
  Report Type: Spontaneous
  Country: PL (occurrence: PL)
  Receive Date: 20181011
  Receipt Date: 20181011
  Transmission Date: 20190205
  Serious: Yes (Other)
  Sender: FDA-Public Use
  Company Number: PHHY2018PL119004

PATIENT
  Age: 31 Year
  Sex: Female

DRUGS (2)
  1. HEPARIN [Suspect]
     Active Substance: HEPARIN SODIUM
     Indication: THROMBOSIS
     Dosage: UNK
     Route: 065
  2. ENOXAPARIN SODIUM. [Suspect]
     Active Substance: ENOXAPARIN SODIUM
     Indication: THROMBOSIS
     Dosage: UNK
     Route: 065

REACTIONS (5)
  - Heparin-induced thrombocytopenia [Unknown]
  - Exposure during pregnancy [Unknown]
  - Factor V Leiden mutation [Unknown]
  - Platelet count decreased [Recovered/Resolved]
  - Disease progression [Unknown]
